FAERS Safety Report 8298267-5 (Version None)
Quarter: 2012Q2

REPORT INFORMATION
  Report Type: 
  Country: None (occurrence: None)
  Receive Date: 20120419
  Receipt Date: 20120202
  Transmission Date: 20120825
  Serious: Yes (Hospitalization)
  Sender: FDA-Public Use
  Company Number: US-BRISTOL-MYERS SQUIBB COMPANY-16376741

PATIENT

DRUGS (1)
  1. YERVOY [Suspect]

REACTIONS (1)
  - NEOPLASM MALIGNANT [None]
